FAERS Safety Report 24286116 (Version 1)
Quarter: 2024Q3

REPORT INFORMATION
  Report Type: Spontaneous
  Country: IE (occurrence: IE)
  Receive Date: 20240905
  Receipt Date: 20240905
  Transmission Date: 20241017
  Serious: Yes (Other)
  Sender: PFIZER
  Company Number: IE-BAXTER-2023BAX023229

PATIENT
  Age: 60 Year
  Sex: Male

DRUGS (7)
  1. HYDROCORTISONE SODIUM SUCCINATE [Suspect]
     Active Substance: HYDROCORTISONE SODIUM SUCCINATE
     Indication: Drug hypersensitivity
     Dosage: 100 MILLIGRAM AT AN UNSPECIFIED FREQUENCY
     Route: 042
     Dates: start: 20230531, end: 20230531
  2. AMLODIPINE BESYLATE [Suspect]
     Active Substance: AMLODIPINE BESYLATE
     Indication: Blood pressure increased
     Dosage: 5 MILLIGRAM AT AN UNSPECIFIED FREQUENCY
     Route: 048
     Dates: start: 20230531, end: 20230531
  3. OXALIPLATIN [Suspect]
     Active Substance: OXALIPLATIN
     Dosage: 260 MILLIGRAM (MG) IN GLUCOSE 500 ML AT UNSPECI
     Route: 042
  4. ASPIRIN [Suspect]
     Active Substance: ASPIRIN
     Indication: Cerebrovascular accident
     Dosage: 300 MILLIGRAM AT AN UNSPECIFIED FREQUENCY
     Route: 048
     Dates: start: 20230531, end: 20230531
  5. CHLORPHENIRAMINE MALEATE [Suspect]
     Active Substance: CHLORPHENIRAMINE MALEATE
     Indication: Drug hypersensitivity
     Dosage: 10 MILLIGRAM AT AN UNSPECIFIED FREQUENCY
     Route: 042
     Dates: start: 20230531, end: 20230531
  6. SODIUM CHLORIDE [Suspect]
     Active Substance: SODIUM CHLORIDE
     Indication: Catheter management
     Dosage: UNK
     Route: 042
  7. DEXTROSE [Suspect]
     Active Substance: DEXTROSE\DEXTROSE MONOHYDRATE
     Indication: Medication dilution
     Dosage: 500 MILLILITER AT AN UNSPECIFIED FREQUENCY
     Route: 042

REACTIONS (10)
  - Malaise [Recovered/Resolved]
  - Blood pressure increased [Recovered/Resolved]
  - Facial paralysis [Recovered/Resolved]
  - Neuropathy peripheral [Unknown]
  - Drug hypersensitivity [Recovered/Resolved]
  - Muscular weakness [Recovered/Resolved]
  - Dysarthria [Recovered/Resolved]
  - Tachycardia [Recovered/Resolved]
  - Fatigue [Unknown]
  - Muscle twitching [Recovered/Resolved]

NARRATIVE: CASE EVENT DATE: 20230531
